FAERS Safety Report 5904397-2 (Version None)
Quarter: 2008Q4

REPORT INFORMATION
  Report Type: 
  Country: None (occurrence: None)
  Receive Date: 20081001
  Receipt Date: 20080908
  Transmission Date: 20090506
  Serious: Yes (Death)
  Sender: FDA-Public Use
  Company Number: JP-BRISTOL-MYERS SQUIBB COMPANY-14323687

PATIENT
  Age: 61 Year
  Sex: Male

DRUGS (1)
  1. ENDOXAN [Suspect]
     Indication: MYCOSIS FUNGOIDES
     Dosage: 347 G OVER A 6 YEAR, 7 MONTH PERIOD
     Route: 048
     Dates: start: 19970401, end: 20031101

REACTIONS (1)
  - BLADDER CANCER [None]
